FAERS Safety Report 10421600 (Version 1)
Quarter: 2014Q3

REPORT INFORMATION
  Report Type: Spontaneous
  Country: US (occurrence: US)
  Receive Date: 20140901
  Receipt Date: 20140901
  Transmission Date: 20150326
  Serious: No
  Sender: FDA-Public Use
  Company Number: US-BIOGENIDEC-2014BI086533

PATIENT
  Sex: Female

DRUGS (1)
  1. AVONEX [Suspect]
     Active Substance: INTERFERON BETA-1A
     Indication: MULTIPLE SCLEROSIS
     Route: 030
     Dates: start: 20030425, end: 20040209

REACTIONS (3)
  - Abasia [Not Recovered/Not Resolved]
  - Incontinence [Not Recovered/Not Resolved]
  - Dysarthria [Not Recovered/Not Resolved]
